FAERS Safety Report 20540765 (Version 1)
Quarter: 2022Q1

REPORT INFORMATION
  Report Type: Spontaneous
  Country: DK (occurrence: DK)
  Receive Date: 20220302
  Receipt Date: 20220302
  Transmission Date: 20220423
  Serious: Yes (Life-Threatening)
  Sender: FDA-Public Use
  Company Number: None

PATIENT
  Age: 12 Year
  Sex: Female
  Weight: 54 kg

DRUGS (1)
  1. STELARA [Suspect]
     Active Substance: USTEKINUMAB
     Indication: Psoriasis
     Dosage: DOSAGE: 45 MG IN WEEK 0 AND WEEK 4, THEREAFTER EVERY 12. WEEK. STRENGTH: 45 MG
     Route: 058
     Dates: start: 20210614, end: 20210712

REACTIONS (3)
  - Suicide attempt [Recovered/Resolved]
  - Depressed mood [Unknown]
  - Suicidal ideation [Unknown]

NARRATIVE: CASE EVENT DATE: 20210101
